FAERS Safety Report 4975798-4 (Version None)
Quarter: 2006Q2

REPORT INFORMATION
  Report Type: 
  Country: None (occurrence: None)
  Receive Date: 20060411
  Receipt Date: 20060330
  Transmission Date: 20061013
  Serious: No
  Sender: FDA-Public Use
  Company Number: 222672

PATIENT
  Age: 33 Year
  Sex: Female

DRUGS (2)
  1. RAPTIVA [Suspect]
     Indication: PSORIASIS
     Dosage: 1 MG, 1/WEEK, SUBCUTANEOUS
     Route: 058
     Dates: start: 20040329
  2. ANTIBIOTIC (ANTIBIOTICS NOS) [Concomitant]

REACTIONS (2)
  - LYMPHADENOPATHY [None]
  - SALIVARY GLAND ADENOMA [None]
